FAERS Safety Report 11776505 (Version 6)
Quarter: 2016Q1

REPORT INFORMATION
  Report Type: Report from Study
  Country: US (occurrence: US)
  Receive Date: 20151125
  Receipt Date: 20160114
  Transmission Date: 20160525
  Serious: Yes (Life-Threatening, Hospitalization)
  Sender: FDA-Public Use
  Company Number: US-ROCHE-1655508

PATIENT
  Age: 82 Year
  Sex: Male
  Weight: 101.6 kg

DRUGS (12)
  1. TRIAMCINOLONE [Concomitant]
     Active Substance: TRIAMCINOLONE
     Indication: RASH MACULO-PAPULAR
     Dosage: 2 UNIT
     Route: 061
     Dates: start: 20151020
  2. ATEZOLIZUMAB [Suspect]
     Active Substance: ATEZOLIZUMAB
     Indication: METASTATIC MALIGNANT MELANOMA
     Dosage: MOST RECENT DOSE PRIOR TO AE ONSET: 20/OCT/2015.
     Route: 042
     Dates: start: 20151020
  3. COBIMETINIB [Suspect]
     Active Substance: COBIMETINIB
     Indication: METASTATIC MALIGNANT MELANOMA
     Dosage: RUN IN COBIMETINIB ?MOST RECENT DOSE 40 MG OF RUN-IN COBIMETINIB WAS ADMINISTERED ON 28/SEP/2015 PRI
     Route: 048
     Dates: start: 20150908
  4. BACTRIM DS [Concomitant]
     Active Substance: SULFAMETHOXAZOLE\TRIMETHOPRIM
     Indication: ABSCESS LIMB
     Route: 048
     Dates: start: 20150930, end: 20151003
  5. ASCORBIC ACID. [Concomitant]
     Active Substance: ASCORBIC ACID
     Indication: PROPHYLAXIS
     Route: 048
  6. GLIMEPIRIDE. [Concomitant]
     Active Substance: GLIMEPIRIDE
     Indication: GLUCOSE TOLERANCE IMPAIRED
     Route: 048
  7. VEMURAFENIB [Suspect]
     Active Substance: VEMURAFENIB
     Indication: METASTATIC MALIGNANT MELANOMA
     Dosage: COMBO VEMURAFENIB?MOST RECENT DOSE OF 720 MG COMBO VEMURAFENIB WAS ADMINISTERED ON 1/NOV/2015 PRIOR
     Route: 048
     Dates: start: 20151020
  8. RIVASTIGMINE. [Concomitant]
     Active Substance: RIVASTIGMINE
     Indication: DEMENTIA
     Dosage: 9.5 OTHER
     Route: 062
  9. SIMVASTATIN. [Concomitant]
     Active Substance: SIMVASTATIN
     Indication: BLOOD CHOLESTEROL INCREASED
     Route: 048
  10. NYSTATIN. [Concomitant]
     Active Substance: NYSTATIN
     Indication: CANDIDA INFECTION
     Route: 065
     Dates: start: 20151107, end: 20151113
  11. VEMURAFENIB [Suspect]
     Active Substance: VEMURAFENIB
     Indication: METASTATIC MALIGNANT MELANOMA
     Dosage: RUN-IN PERIOD. ?MOST RECENT DOSE OF  720 MG OF RUN IN VEMURAFENIB WAS ADMINISTAED ON 19/OCT/2015 PRI
     Route: 048
     Dates: start: 20150908
  12. COBIMETINIB [Suspect]
     Active Substance: COBIMETINIB
     Indication: METASTATIC MALIGNANT MELANOMA
     Dosage: COMBO COBIMETINIB ?MOST RECENT DOSE 40 MG OF COMBO COBIMETINIB WAS ADMINISTERED ON 01/NOV/2015 PRIOR
     Route: 048
     Dates: start: 20151020

REACTIONS (5)
  - Tremor [Recovered/Resolved]
  - Gait disturbance [Recovering/Resolving]
  - Clostridium difficile infection [Recovered/Resolved]
  - Diverticulitis [Recovered/Resolved]
  - Sepsis [Recovered/Resolved]

NARRATIVE: CASE EVENT DATE: 20151102
